FAERS Safety Report 20407111 (Version 1)
Quarter: 2022Q1

REPORT INFORMATION
  Report Type: Spontaneous
  Country: US (occurrence: US)
  Receive Date: 20220131
  Receipt Date: 20220131
  Transmission Date: 20220423
  Serious: No
  Sender: FDA-Public Use
  Company Number: US-GILEAD-2022-0567036

PATIENT
  Sex: Male

DRUGS (2)
  1. HARVONI [Suspect]
     Active Substance: LEDIPASVIR\SOFOSBUVIR
     Indication: Chronic hepatitis C
     Dosage: 1 DOSAGE FORM, QD
     Route: 048
  2. RIBAVIRIN [Concomitant]
     Active Substance: RIBAVIRIN

REACTIONS (2)
  - Pain in extremity [Unknown]
  - COVID-19 [Unknown]
